FAERS Safety Report 11151049 (Version 1)
Quarter: 2015Q2

REPORT INFORMATION
  Report Type: Spontaneous
  Country: PL (occurrence: PL)
  Receive Date: 20150601
  Receipt Date: 20150601
  Transmission Date: 20150821
  Serious: Yes (Other)
  Sender: FDA-Public Use
  Company Number: PL-TEVA-566455ISR

PATIENT
  Age: 31 Year
  Sex: Female
  Weight: 75 kg

DRUGS (2)
  1. ETOPOZYD [Suspect]
     Active Substance: ETOPOSIDE
     Route: 042
     Dates: start: 20130729, end: 20131002
  2. CISPLATYNA [Suspect]
     Active Substance: CISPLATIN
     Route: 042
     Dates: start: 20130729, end: 20131002

REACTIONS (2)
  - Metastatic pulmonary embolism [Unknown]
  - Ejection fraction decreased [Recovering/Resolving]

NARRATIVE: CASE EVENT DATE: 20131028
